FAERS Safety Report 8565529 (Version 2)
Quarter: 2013Q2

REPORT INFORMATION
  Report Type: Spontaneous
  Country: US (occurrence: US)
  Receive Date: 20120516
  Receipt Date: 20130525
  Transmission Date: 20140414
  Serious: No
  Sender: FDA-Public Use
  Company Number: US-ASTRAZENECA-2012SE26554

PATIENT
  Age: 80 Year
  Sex: Female

DRUGS (3)
  1. ATACAND HCT [Suspect]
     Route: 048
  2. NEXIUM [Suspect]
     Route: 048
  3. TOPROL XL [Suspect]
     Route: 048

REACTIONS (5)
  - Blood pressure increased [Unknown]
  - Nasopharyngitis [Unknown]
  - Sinus disorder [Unknown]
  - Stress [Unknown]
  - Abnormal behaviour [Unknown]
